FAERS Safety Report 4491796-1 (Version None)
Quarter: 2004Q4

REPORT INFORMATION
  Report Type: 
  Country: None (occurrence: None)
  Receive Date: 20041101
  Receipt Date: 20041022
  Transmission Date: 20050328
  Serious: Yes (Death)
  Sender: FDA-Public Use
  Company Number: 2004-10-1473

PATIENT
  Age: 83 Year
  Sex: Male

DRUGS (2)
  1. INTRON A [Suspect]
     Indication: HAIRY CELL LEUKAEMIA
     Dosage: UNKNOWN SUBCUTANEOUS
     Route: 058
  2. CHLORAMBUCIL FOR HAIRY CELL LEUKEMIA [Concomitant]

REACTIONS (2)
  - HEPATIC CANCER METASTATIC [None]
  - NEUROENDOCRINE CARCINOMA [None]
